FAERS Safety Report 7477506-4 (Version None)
Quarter: 2011Q2

REPORT INFORMATION
  Report Type: 
  Country: None (occurrence: None)
  Receive Date: 20110513
  Receipt Date: 20110504
  Transmission Date: 20111010
  Serious: Yes (Hospitalization, Other)
  Sender: FDA-Public Use
  Company Number: CA-ROCHE-624758

PATIENT
  Sex: Female
  Weight: 64.3 kg

DRUGS (21)
  1. TRAZODONE HCL [Concomitant]
     Dates: start: 19990101
  2. CEFTAZIDIME [Concomitant]
     Dates: start: 20090327, end: 20090328
  3. DOCETAXEL [Suspect]
     Route: 042
     Dates: start: 20090429
  4. DOCUSATE [Concomitant]
     Dosage: DOSE: 2 TO 6
     Dates: start: 20090328, end: 20090402
  5. HERCEPTIN [Suspect]
     Route: 042
     Dates: start: 20090429
  6. CARBOPLATIN [Suspect]
     Route: 042
     Dates: start: 20090429
  7. MORPHINE [Suspect]
     Dosage: FREQUENCY: Q 4 HRS PRN
     Route: 065
     Dates: start: 20090328, end: 20090401
  8. CIPROFLOXACIN [Suspect]
     Route: 048
     Dates: start: 20090401, end: 20090403
  9. MOUTHWASH NOS [Concomitant]
     Dosage: DRUG NAME: CCI MOUTH WASH. DOSAGE: 30 CC
     Dates: start: 20090328, end: 20090331
  10. HERCEPTIN [Suspect]
     Dosage: FORM: VIAL. TOTAL DOSE: 960 MG. DATE OF LAST DOSE PRIOR TO SAE: 18 MARCH 2009.
     Route: 042
     Dates: start: 20090318, end: 20090406
  11. HERCEPTIN [Suspect]
     Dosage: FORM: VIAL. TOTAL DOSE: 512 MG. DATE OF LAST DOSE PRIOR TO SAE: 18 MARCH 2009. LOADING DOSE.
     Route: 042
     Dates: start: 20090318
  12. CARBOPLATIN [Suspect]
     Dosage: DOSE: 6 AUC. FORM:VIAL. TOTAL DOSE: 852 MG.DATE OF LAST DOSE PRIOR TO SAE:18 MAR 09.
     Route: 042
     Dates: start: 20090318
  13. ACETAMINOPHEN [Suspect]
     Route: 065
  14. DOCETAXEL [Suspect]
     Dosage: FORM: VIAL. TOTAL DOSE: 126.8 MG. DATE OF LAST DOSE PRIOR TO SAE: 18 MARCH 2009.
     Route: 042
     Dates: start: 20090318
  15. ESCITALOPRAM [Suspect]
     Route: 065
     Dates: start: 20081201
  16. CODEINE/AMMONIUM CHLORIDE [Concomitant]
  17. CODEINE SULFATE [Concomitant]
     Dates: start: 20090323, end: 20090328
  18. GRAVOL TAB [Concomitant]
     Dates: start: 20090329, end: 20090330
  19. SENNA-MINT WAF [Concomitant]
     Dosage: DOSE: 2TO 6
     Dates: start: 20090328, end: 20090402
  20. LACTULOSE [Concomitant]
     Dosage: DOSE: 15 TO 30 ML
     Dates: start: 20090328, end: 20090329
  21. ESCITALOPRAM [Concomitant]
     Dates: start: 20081201

REACTIONS (3)
  - NEUTROPENIA [None]
  - PLEURAL EFFUSION [None]
  - BRADYCARDIA [None]
